FAERS Safety Report 4963293-8 (Version None)
Quarter: 2006Q2

REPORT INFORMATION
  Report Type: 
  Country: None (occurrence: None)
  Receive Date: 20060404
  Receipt Date: 20060404
  Transmission Date: 20061013
  Serious: Yes (Life-Threatening, Hospitalization)
  Sender: FDA-Public Use
  Company Number: None

PATIENT
  Age: 70 Year
  Sex: Female
  Weight: 74.8435 kg

DRUGS (9)
  1. FLUOXETINE [Suspect]
     Indication: DEPRESSION
     Dosage: 20MG   DAILY   PO   (DURATION: SEVERAL YEARS)
     Route: 048
  2. LISINOPRIL AND HYDROCHLOROTHIAZIDE [Concomitant]
  3. LEVOTHYROXINE SODIUM [Concomitant]
  4. CETIRIZINE [Concomitant]
  5. FLUTICASONE PROPIONATE [Concomitant]
  6. ESTRADIOL [Concomitant]
  7. ROSUVASTATIN [Concomitant]
  8. ALPRAZOLAM [Concomitant]
  9. HYDROCODONE/ACETOMINOPHEN [Concomitant]

REACTIONS (1)
  - INAPPROPRIATE ANTIDIURETIC HORMONE SECRETION [None]
